FAERS Safety Report 9725543 (Version 4)
Quarter: 2014Q1

REPORT INFORMATION
  Report Type: Spontaneous
  Country: IE (occurrence: IE)
  Receive Date: 20131203
  Receipt Date: 20140121
  Transmission Date: 20141002
  Serious: Yes (Hospitalization)
  Sender: FDA-Public Use
  Company Number: PHFR2013IE005627

PATIENT
  Age: 26 Year
  Sex: Male

DRUGS (7)
  1. CLOZARIL [Suspect]
     Indication: SCHIZOPHRENIA
     Dosage: 650 MG, DAILY
     Route: 048
     Dates: start: 20080509, end: 20130927
  2. CLOZARIL [Suspect]
     Dosage: 650 MG, DAILY
     Route: 048
     Dates: start: 20131001
  3. CLOZARIL [Suspect]
     Dosage: 650 MG, QD (50MG MANE, 600MG NOCTE), DAILY
     Route: 048
  4. EPILIM [Concomitant]
     Indication: EPILEPSY
     Dosage: 500 MG, NOCTE
  5. INVEGA (PALIPERIDONE) [Concomitant]
     Indication: SCHIZOPHRENIA
     Dosage: 6 MG, NOCTE
  6. BISOPROLOL [Concomitant]
     Indication: ANXIETY
     Dosage: 2.5 MG, MANE
  7. ABILIFY [Concomitant]
     Indication: SCHIZOPHRENIA
     Dosage: 30 MG MANE

REACTIONS (5)
  - Eye swelling [Recovered/Resolved]
  - Circulatory collapse [Recovered/Resolved]
  - Presyncope [Recovered/Resolved]
  - Syncope [Recovered/Resolved]
  - Blood creatine phosphokinase increased [Recovered/Resolved]
